FAERS Safety Report 4526440-8 (Version None)
Quarter: 2004Q4

REPORT INFORMATION
  Report Type: 
  Country: None (occurrence: None)
  Receive Date: 20041214
  Receipt Date: 20041207
  Transmission Date: 20050328
  Serious: Yes (Death)
  Sender: FDA-Public Use
  Company Number: FR-JNJFOC-20041202493

PATIENT
  Sex: Male

DRUGS (1)
  1. PREPULSID [Suspect]
     Route: 051

REACTIONS (1)
  - ASPIRATION [None]
